FAERS Safety Report 15038575 (Version 1)
Quarter: 2018Q2

REPORT INFORMATION
  Report Type: Spontaneous
  Country: CH (occurrence: CH)
  Receive Date: 20180620
  Receipt Date: 20180620
  Transmission Date: 20180711
  Serious: Yes (Other)
  Sender: FDA-Public Use
  Company Number: CH-ANIPHARMA-2018-CH-000009

PATIENT
  Age: 7 Year
  Sex: Female

DRUGS (1)
  1. VALPROIC ACID (NON-SPECIFIC) [Suspect]
     Active Substance: VALPROIC ACID

REACTIONS (2)
  - Thrombocytopenia [Unknown]
  - Psoriasis [Unknown]
